FAERS Safety Report 6184036-9 (Version None)
Quarter: 2009Q2

REPORT INFORMATION
  Report Type: 
  Country: None (occurrence: None)
  Receive Date: 20090508
  Receipt Date: 20090429
  Transmission Date: 20091009
  Serious: Yes (Other)
  Sender: FDA-Public Use
  Company Number: US-ASTRAZENECA-2009AC01216

PATIENT
  Age: 41 Year
  Sex: Male

DRUGS (3)
  1. LIDOCAINE [Suspect]
     Dosage: FIRST
     Route: 040
  2. LIDOCAINE [Suspect]
     Dosage: FIRST
     Route: 042
  3. LIDOCAINE [Suspect]
     Dosage: SECOND
     Route: 042

REACTIONS (11)
  - AGITATION [None]
  - ATAXIA [None]
  - COMA [None]
  - CONFUSIONAL STATE [None]
  - DIPLOPIA [None]
  - DYSARTHRIA [None]
  - EXTENSOR PLANTAR RESPONSE [None]
  - HYPERREFLEXIA [None]
  - HYPERTONIA [None]
  - NYSTAGMUS [None]
  - POSTURE ABNORMAL [None]
